FAERS Safety Report 23443801 (Version 4)
Quarter: 2024Q1

REPORT INFORMATION
  Report Type: Report from Study
  Country: MX (occurrence: MX)
  Receive Date: 20240125
  Receipt Date: 20240313
  Transmission Date: 20240410
  Serious: Yes (Other)
  Sender: FDA-Public Use
  Company Number: MX-AstraZeneca-2023A289962

PATIENT
  Age: 51 Week
  Sex: Female
  Weight: 7.3 kg

DRUGS (5)
  1. SYNAGIS [Suspect]
     Active Substance: PALIVIZUMAB
     Indication: Respiratory syncytial virus bronchitis
     Dosage: 100 MG/1 ML MONTHLY
     Route: 030
     Dates: start: 20231113, end: 20231113
  2. SYNAGIS [Suspect]
     Active Substance: PALIVIZUMAB
     Dosage: MONTHLY
     Route: 030
     Dates: start: 20231214, end: 20231214
  3. SYNAGIS [Suspect]
     Active Substance: PALIVIZUMAB
     Dosage: 100 MG/1 ML MONTHLY
     Route: 030
     Dates: start: 20240116, end: 20240116
  4. SYNAGIS [Suspect]
     Active Substance: PALIVIZUMAB
     Dosage: 100 MG/1 ML MONTHLY
     Route: 030
     Dates: start: 20240220, end: 20240220
  5. FLUTICASONE [Concomitant]
     Active Substance: FLUTICASONE
     Indication: Product used for unknown indication

REACTIONS (15)
  - Diarrhoea haemorrhagic [Recovered/Resolved]
  - Diarrhoea [Recovered/Resolved]
  - Nasal congestion [Recovered/Resolved]
  - Productive cough [Recovered/Resolved]
  - Cough [Not Recovered/Not Resolved]
  - Restlessness [Recovered/Resolved]
  - Crying [Recovered/Resolved]
  - Pyrexia [Recovered/Resolved]
  - Discouragement [Recovered/Resolved]
  - Peripheral swelling [Recovered/Resolved]
  - Pain [Recovered/Resolved]
  - Discomfort [Recovered/Resolved]
  - Secretion discharge [Not Recovered/Not Resolved]
  - Rhinorrhoea [Not Recovered/Not Resolved]
  - Illness [Not Recovered/Not Resolved]

NARRATIVE: CASE EVENT DATE: 20231215
